FAERS Safety Report 7725450-7 (Version None)
Quarter: 2011Q3

REPORT INFORMATION
  Report Type: 
  Country: None (occurrence: None)
  Receive Date: 20110902
  Receipt Date: 20110822
  Transmission Date: 20111222
  Serious: Yes (Other)
  Sender: FDA-Public Use
  Company Number: US-JNJFOC-20110810554

PATIENT
  Age: 22 Year
  Sex: Male

DRUGS (3)
  1. INSULIN [Concomitant]
     Indication: BLOOD GLUCOSE INCREASED
     Route: 058
     Dates: start: 20110101
  2. INVEGA SUSTENNA [Suspect]
     Indication: SCHIZOPHRENIA
     Route: 030
     Dates: start: 20110101, end: 20110803
  3. METFORMIN [Concomitant]
     Indication: BLOOD GLUCOSE INCREASED
     Route: 048
     Dates: start: 20110101

REACTIONS (2)
  - WEIGHT INCREASED [None]
  - BLOOD GLUCOSE INCREASED [None]
